FAERS Safety Report 21315448 (Version 1)
Quarter: 2022Q3

REPORT INFORMATION
  Report Type: Spontaneous
  Country: GR (occurrence: GR)
  Receive Date: 20220909
  Receipt Date: 20220909
  Transmission Date: 20221026
  Serious: Yes (Death, Other)
  Sender: FDA-Public Use
  Company Number: GR-GILEAD-2022-0597094

PATIENT
  Sex: Male

DRUGS (1)
  1. TECARTUS [Suspect]
     Active Substance: BREXUCABTAGENE AUTOLEUCEL
     Indication: Mantle cell lymphoma
     Route: 065

REACTIONS (1)
  - Multiple organ dysfunction syndrome [Fatal]
